FAERS Safety Report 16835259 (Version 1)
Quarter: 2019Q3

REPORT INFORMATION
  Report Type: Spontaneous
  Country: US (occurrence: US)
  Receive Date: 20190920
  Receipt Date: 20190920
  Transmission Date: 20191005
  Serious: Yes (Hospitalization, Other)
  Sender: FDA-Public Use
  Company Number: US-TEVA-2019-US-1110906

PATIENT

DRUGS (1)
  1. PROPOFOL TEVA [Suspect]
     Active Substance: PROPOFOL
     Indication: ANAESTHESIA
     Route: 065
     Dates: start: 20190813

REACTIONS (5)
  - Brain injury [Unknown]
  - Migraine [Unknown]
  - Seizure [Unknown]
  - Loss of consciousness [Unknown]
  - Loss of personal independence in daily activities [Unknown]

NARRATIVE: CASE EVENT DATE: 201908
